FAERS Safety Report 24540712 (Version 1)
Quarter: 2024Q4

REPORT INFORMATION
  Report Type: Spontaneous
  Country: GB (occurrence: GB)
  Receive Date: 20241023
  Receipt Date: 20241023
  Transmission Date: 20250114
  Serious: Yes (Hospitalization, Other)
  Sender: CIPLA
  Company Number: GB-MHRA-MIDB-1b636775-3b2b-47f8-8f75-548d566ca655

PATIENT

DRUGS (2)
  1. TADALAFIL [Suspect]
     Active Substance: TADALAFIL
     Indication: Erectile dysfunction
     Dosage: 5 MILLIGRAM, QD 5 MG, OD)
     Route: 065
     Dates: start: 20240326, end: 20240926
  2. ASPIRIN [Interacting]
     Active Substance: ASPIRIN
     Indication: Pulmonary artery thrombosis
     Dosage: 75 MILLIGRAM, QD
     Route: 065

REACTIONS (1)
  - Thrombocytopenic purpura [Recovering/Resolving]

NARRATIVE: CASE EVENT DATE: 20240926
